FAERS Safety Report 6333464-7 (Version None)
Quarter: 2009Q3

REPORT INFORMATION
  Report Type: 
  Country: None (occurrence: None)
  Receive Date: 20090828
  Receipt Date: 20090821
  Transmission Date: 20100115
  Serious: Yes (Other)
  Sender: FDA-Public Use
  Company Number: PHHY2009PT35678

PATIENT
  Sex: Female

DRUGS (2)
  1. ZOMETA [Suspect]
     Indication: MULTIPLE MYELOMA
     Dosage: UNK
     Dates: start: 20000101, end: 20080101
  2. BISPHOSPHONATES [Concomitant]
     Dosage: UNK
     Route: 048
     Dates: end: 20090201

REACTIONS (3)
  - JAW FRACTURE [None]
  - OSTEONECROSIS [None]
  - PATHOLOGICAL FRACTURE [None]
